FAERS Safety Report 7042951-8 (Version None)
Quarter: 2010Q4

REPORT INFORMATION
  Report Type: 
  Country: None (occurrence: None)
  Receive Date: 20101013
  Receipt Date: 20101008
  Transmission Date: 20110411
  Serious: Yes (Hospitalization)
  Sender: FDA-Public Use
  Company Number: ES-BRISTOL-MYERS SQUIBB COMPANY-15248255

PATIENT
  Age: 63 Year
  Sex: Male
  Weight: 63 kg

DRUGS (3)
  1. CETUXIMAB [Suspect]
     Indication: HEAD AND NECK CANCER
     Dosage: CETUXIMAB 5MG/ML RECENT INF:09AUG2010 INTERPT ON 16AUG2010;INF:2 DURATION:7
     Route: 042
     Dates: start: 20100802, end: 20100816
  2. CISPLATIN [Suspect]
     Indication: HEAD AND NECK CANCER
     Dosage: NO OF INF: 1
     Route: 042
     Dates: start: 20100802
  3. 5-FLUOROURACIL [Suspect]
     Indication: HEAD AND NECK CANCER
     Dosage: CONTIN INF FROM DAY 1 TO DAY 4 OF CYCLE NO OF INF: 1
     Route: 042
     Dates: start: 20100802

REACTIONS (1)
  - MUCOSAL INFLAMMATION [None]
